FAERS Safety Report 6434061-5 (Version None)
Quarter: 2009Q4

REPORT INFORMATION
  Report Type: 
  Country: None (occurrence: None)
  Receive Date: 20091110
  Receipt Date: 20091102
  Transmission Date: 20100525
  Serious: Yes (Hospitalization)
  Sender: FDA-Public Use
  Company Number: FR-BAXTER-2009BH016845

PATIENT
  Age: 60 Year
  Sex: Male

DRUGS (5)
  1. SUPRANE [Suspect]
     Indication: ANAESTHESIA
     Route: 065
     Dates: start: 20081211, end: 20081211
  2. SUCCINYLCHOLINE CHLORIDE [Suspect]
     Indication: ANAESTHESIA
     Route: 065
     Dates: start: 20081211, end: 20081211
  3. PROPOFOL [Suspect]
     Indication: ANAESTHESIA
     Route: 065
     Dates: start: 20081211, end: 20081211
  4. REMIFENTANIL [Suspect]
     Indication: ANAESTHESIA
     Route: 065
     Dates: start: 20081211, end: 20081211
  5. CEFAZOLIN [Suspect]
     Indication: DRUG USE FOR UNKNOWN INDICATION
     Route: 065
     Dates: start: 20081211, end: 20081211

REACTIONS (1)
  - ANAPHYLACTIC SHOCK [None]
